FAERS Safety Report 20703021 (Version 1)
Quarter: 2022Q2

REPORT INFORMATION
  Report Type: Spontaneous
  Country: FR (occurrence: FR)
  Receive Date: 20220413
  Receipt Date: 20220413
  Transmission Date: 20220721
  Serious: Yes (Hospitalization)
  Sender: FDA-Public Use
  Company Number: FR-AFSSAPS-MP20221418

PATIENT
  Age: 90 Year
  Sex: Female

DRUGS (4)
  1. MORPHINE [Suspect]
     Active Substance: MORPHINE
     Indication: Pain
     Dosage: AN INTRAMUSCULAR INJECTION OF 10 MG OF MORPHINE; IN TOTAL
     Route: 030
     Dates: start: 20220224, end: 20220224
  2. L THYROXINE SERB, solution buvable en gouttes [Concomitant]
     Indication: Hypothyroidism
     Dosage: 18 GTT DROPS, DAILY, 18 DROPS IN THE MORNING
     Route: 048
  3. RAMIPRIL [Concomitant]
     Active Substance: RAMIPRIL
     Indication: Hypertension
     Dosage: 5 MILLIGRAM, DAILY, ONE 5MG TABLET IN THE EVENING.
     Route: 048
  4. PREDNISONE [Concomitant]
     Active Substance: PREDNISONE
     Indication: Product used for unknown indication
     Dosage: 20 MILLIGRAM, DAILY, ONE 20MG TABLET EVERY MORNING.
     Route: 048

REACTIONS (2)
  - Somnolence [Recovered/Resolved]
  - Bradypnoea [Recovered/Resolved]

NARRATIVE: CASE EVENT DATE: 20220224
